FAERS Safety Report 17903487 (Version 1)
Quarter: 2020Q2

REPORT INFORMATION
  Report Type: Spontaneous
  Country: US (occurrence: US)
  Receive Date: 20200617
  Receipt Date: 20200617
  Transmission Date: 20200714
  Serious: No
  Sender: FDA-Public Use
  Company Number: US-AUROBINDO-AUR-APL-2019-056601

PATIENT
  Age: 63 Year
  Sex: Female

DRUGS (1)
  1. PENICILLIN V POTASSIUM TABLETS USP 500MG [Suspect]
     Active Substance: PENICILLIN V POTASSIUM
     Indication: TOOTH INFECTION
     Dosage: ONE TABLET FOUR TIMES DAILY
     Route: 048

REACTIONS (1)
  - Pruritus [Not Recovered/Not Resolved]
